FAERS Safety Report 25551452 (Version 1)
Quarter: 2025Q3

REPORT INFORMATION
  Report Type: Spontaneous
  Country: US (occurrence: None)
  Receive Date: 20250711
  Receipt Date: 20250711
  Transmission Date: 20251020
  Serious: Yes (Disabling, Other)
  Sender: FDA-CTU
  Company Number: None

PATIENT
  Age: 43 Year
  Sex: Female
  Weight: 51.75 kg

DRUGS (1)
  1. LUMIFY [Suspect]
     Active Substance: BRIMONIDINE TARTRATE
     Indication: Ocular hyperaemia

REACTIONS (7)
  - Constipation [None]
  - Dyspepsia [None]
  - Gastric hypomotility [None]
  - Fatigue [None]
  - Abdominal discomfort [None]
  - Abdominal distension [None]
  - Systemic toxicity [None]

NARRATIVE: CASE EVENT DATE: 20250708
